FAERS Safety Report 5612267-2 (Version None)
Quarter: 2008Q1

REPORT INFORMATION
  Report Type: 
  Country: None (occurrence: None)
  Receive Date: 20080128
  Receipt Date: 20080122
  Transmission Date: 20080703
  Serious: Yes (Other)
  Sender: FDA-Public Use
  Company Number: 2008AL000378

PATIENT
  Age: 62 Year
  Sex: Male

DRUGS (9)
  1. DIGOXIN [Suspect]
     Dosage: 0.25 MG;QD;PO
     Route: 048
  2. ITRACONAZOLE [Concomitant]
  3. LEVOTHYROXINE SODIUM [Concomitant]
  4. WARFARIN SODIUM [Concomitant]
  5. CANDESARTAN CILEXETIL [Concomitant]
  6. ISOSORBIDE DINITRATE [Concomitant]
  7. LANSOPRAZOLE [Concomitant]
  8. FERROUS CITRATE [Concomitant]
  9. FUROSEMIDE [Concomitant]

REACTIONS (17)
  - ATRIOVENTRICULAR BLOCK FIRST DEGREE [None]
  - BRONCHOPULMONARY ASPERGILLOSIS [None]
  - DYSGEUSIA [None]
  - ELECTROCARDIOGRAM PQ INTERVAL PROLONGED [None]
  - ELECTROCARDIOGRAM QT SHORTENED [None]
  - ELECTROCARDIOGRAM ST-T CHANGE [None]
  - GLOSSOPHARYNGEAL NERVE DISORDER [None]
  - HYPOGEUSIA [None]
  - ILL-DEFINED DISORDER [None]
  - NEPHROTIC SYNDROME [None]
  - OLFACTORY NERVE DISORDER [None]
  - OPTIC NEURITIS RETROBULBAR [None]
  - PHOTOPHOBIA [None]
  - SINUSITIS [None]
  - THERAPEUTIC AGENT TOXICITY [None]
  - VENTRICULAR HYPERTROPHY [None]
  - XANTHOPSIA [None]
